FAERS Safety Report 10410227 (Version 1)
Quarter: 2014Q3

REPORT INFORMATION
  Report Type: Spontaneous
  Country: US (occurrence: None)
  Receive Date: 20140825
  Receipt Date: 20140825
  Transmission Date: 20150326
  Serious: Yes (Disabling, Other)
  Sender: FDA-Public Use
  Company Number: None

PATIENT
  Age: 81 Year
  Sex: Female
  Weight: 77.11 kg

DRUGS (1)
  1. LEVOFLOXACIN 500MG [Suspect]
     Active Substance: LEVOFLOXACIN
     Indication: URINARY TRACT INFECTION
     Route: 042
     Dates: start: 20140402, end: 20140406

REACTIONS (3)
  - Balance disorder [None]
  - Tendon rupture [None]
  - Quality of life decreased [None]

NARRATIVE: CASE EVENT DATE: 20140331
